FAERS Safety Report 6129404-6 (Version None)
Quarter: 2009Q1

REPORT INFORMATION
  Report Type: 
  Country: None (occurrence: None)
  Receive Date: 20090324
  Receipt Date: 20090312
  Transmission Date: 20090719
  Serious: Yes (Other)
  Sender: FDA-Public Use
  Company Number: US-JNJFOC-20090202421

PATIENT
  Sex: Female
  Weight: 49.9 kg

DRUGS (4)
  1. REMICADE [Suspect]
     Indication: CROHN'S DISEASE
     Route: 042
  2. YAZ [Concomitant]
  3. VALTREX [Concomitant]
  4. CLARITIN [Concomitant]

REACTIONS (1)
  - MALIGNANT MELANOMA [None]
